FAERS Safety Report 7262034-1 (Version None)
Quarter: 2011Q1

REPORT INFORMATION
  Report Type: 
  Country: None (occurrence: None)
  Receive Date: 20110130
  Receipt Date: 20101025
  Transmission Date: 20110831
  Serious: No
  Sender: FDA-Public Use
  Company Number: US-ABBOTT-10P-163-0681386-00

PATIENT
  Sex: Female
  Weight: 79.45 kg

DRUGS (6)
  1. EXCEDRIN (MIGRAINE) [Concomitant]
     Indication: MIGRAINE
  2. IMITREX [Concomitant]
     Indication: MIGRAINE
  3. HUMIRA [Suspect]
     Indication: RHEUMATOID ARTHRITIS
     Dates: start: 20101021
  4. COMPAZINE [Concomitant]
     Indication: NAUSEA
  5. HYDROCODONE [Concomitant]
     Indication: RHEUMATOID ARTHRITIS
  6. ARAVA [Concomitant]
     Indication: RHEUMATOID ARTHRITIS

REACTIONS (6)
  - VERTIGO [None]
  - ANXIETY [None]
  - PARAESTHESIA [None]
  - CONTUSION [None]
  - PRURITUS [None]
  - SENSORY DISTURBANCE [None]
